FAERS Safety Report 6469775-4 (Version None)
Quarter: 2009Q4

REPORT INFORMATION
  Report Type: 
  Country: None (occurrence: None)
  Receive Date: 20091203
  Receipt Date: 20071102
  Transmission Date: 20100525
  Serious: Yes (Death)
  Sender: FDA-Public Use
  Company Number: GB-ELI_LILLY_AND_COMPANY-GB200710006567

PATIENT
  Sex: Male

DRUGS (6)
  1. OLANZAPINE [Suspect]
     Dosage: 12.5 MG, DAILY (1/D)
     Dates: start: 20010806, end: 20011113
  2. CLOZAPINE [Concomitant]
     Indication: SCHIZOPHRENIA
     Dosage: 200 MG, UNK
     Route: 045
     Dates: start: 20011024, end: 20011118
  3. DIAZEPAM [Concomitant]
     Dates: start: 20011003, end: 20011118
  4. LANSOPRAZOLE [Concomitant]
     Dates: start: 20011029, end: 20011118
  5. RANITIDINE [Concomitant]
     Dates: start: 20010730, end: 20011028
  6. HALOPERIDOL [Concomitant]

REACTIONS (6)
  - CHEST PAIN [None]
  - COLITIS ULCERATIVE [None]
  - DYSPNOEA [None]
  - INTESTINAL ISCHAEMIA [None]
  - MULTI-ORGAN FAILURE [None]
  - SEPTIC SHOCK [None]
